FAERS Safety Report 4402115-0 (Version None)
Quarter: 2004Q3

REPORT INFORMATION
  Report Type: 
  Country: None (occurrence: None)
  Receive Date: 20040719
  Receipt Date: 20040719
  Transmission Date: 20050211
  Serious: Yes (Hospitalization)
  Sender: FDA-Public Use
  Company Number: None

PATIENT
  Age: 12 Year
  Sex: Female
  Weight: 81.6475 kg

DRUGS (6)
  1. CHLORAMPHENICOL [Suspect]
     Indication: TULARAEMIA
     Dosage: 1250 MG IV  Q 6
     Route: 042
  2. STREPTOMYCIN [Suspect]
     Indication: TULARAEMIA
     Dosage: 1 GM IV Q 12
     Route: 042
  3. TORADOL [Suspect]
     Indication: PAIN
     Dosage: 15MG IV X 1 ONE DOSE
     Route: 042
  4. TORADOL [Suspect]
     Indication: TULARAEMIA
     Dosage: 15MG IV X 1 ONE DOSE
     Route: 042
  5. GABAPENTIN [Suspect]
     Indication: PAIN
     Dosage: 100 MG PO TID
     Route: 048
  6. GABAPENTIN [Suspect]
     Indication: TULARAEMIA
     Dosage: 100 MG PO TID
     Route: 048

REACTIONS (1)
  - STEVENS-JOHNSON SYNDROME [None]
